FAERS Safety Report 13763940 (Version 1)
Quarter: 2017Q3

REPORT INFORMATION
  Report Type: Spontaneous
  Country: PE (occurrence: PE)
  Receive Date: 20170718
  Receipt Date: 20170718
  Transmission Date: 20171127
  Serious: Yes (Other)
  Sender: FDA-Public Use
  Company Number: PE-PFIZER INC-2017300041

PATIENT
  Sex: Female

DRUGS (1)
  1. DALACIN [Suspect]
     Active Substance: CLINDAMYCIN
     Indication: CELLULITIS
     Dosage: UNK

REACTIONS (7)
  - Abdominal pain [Unknown]
  - Ocular hyperaemia [Unknown]
  - Chills [Unknown]
  - Haematochezia [Unknown]
  - Erythema [Unknown]
  - Diarrhoea [Unknown]
  - Pyrexia [Unknown]
